FAERS Safety Report 11772146 (Version 1)
Quarter: 2015Q4

REPORT INFORMATION
  Report Type: Spontaneous
  Country: US (occurrence: US)
  Receive Date: 20151124
  Receipt Date: 20151124
  Transmission Date: 20160304
  Serious: Yes (Life-Threatening, Hospitalization)
  Sender: FDA-Public Use
  Company Number: US-MYLANLABS-2015M1041826

PATIENT

DRUGS (1)
  1. CLOZAPINE. [Suspect]
     Active Substance: CLOZAPINE
     Indication: SCHIZOPHRENIA
     Dosage: RAPIDLY UP-TITRATED
     Route: 065

REACTIONS (4)
  - Circulatory collapse [Recovered/Resolved]
  - Extrapyramidal disorder [None]
  - Drug titration error [Recovered/Resolved]
  - Atrial fibrillation [None]
